FAERS Safety Report 5997290-0 (Version None)
Quarter: 2008Q4

REPORT INFORMATION
  Report Type: 
  Country: None (occurrence: None)
  Receive Date: 20081212
  Receipt Date: 20081107
  Transmission Date: 20090506
  Serious: No
  Sender: FDA-Public Use
  Company Number: US-ABBOTT-08P-163-0486839-00

PATIENT
  Sex: Female
  Weight: 68.1 kg

DRUGS (9)
  1. HUMIRA [Suspect]
     Indication: RHEUMATOID ARTHRITIS
     Route: 050
  2. LISINOPRIL [Concomitant]
     Indication: HYPERTENSION
  3. VITAMIN-B-KOMPLEX STANDARD [Concomitant]
     Indication: DRUG USE FOR UNKNOWN INDICATION
     Route: 048
  4. CYANOCOBALAMIN [Concomitant]
     Indication: DRUG USE FOR UNKNOWN INDICATION
     Route: 048
  5. ERGOCALCIFEROL [Concomitant]
     Indication: DRUG USE FOR UNKNOWN INDICATION
  6. FOLIC ACID [Concomitant]
     Indication: DRUG USE FOR UNKNOWN INDICATION
     Route: 048
  7. MELOXICAM [Concomitant]
     Indication: INFLAMMATION
     Route: 048
  8. PROVELLA-14 [Concomitant]
     Indication: HORMONE THERAPY
     Route: 048
  9. ULTRACET [Concomitant]
     Indication: PAIN
     Dosage: PRN
     Route: 048

REACTIONS (1)
  - BRONCHITIS [None]
